FAERS Safety Report 11705332 (Version 6)
Quarter: 2016Q1

REPORT INFORMATION
  Report Type: Report from Study
  Country: ES (occurrence: ES)
  Receive Date: 20151106
  Receipt Date: 20160226
  Transmission Date: 20160525
  Serious: Yes (Hospitalization, Other)
  Sender: FDA-Public Use
  Company Number: ES-ABBVIE-15P-144-1468709-00

PATIENT
  Sex: Female

DRUGS (2)
  1. DUODOPA [Suspect]
     Active Substance: CARBIDOPA\LEVODOPA
     Indication: PARKINSON^S DISEASE
     Dosage: CONTINUOS DOSE: 5.2 ML/H
     Route: 050
     Dates: start: 201409, end: 201510
  2. DUODOPA [Suspect]
     Active Substance: CARBIDOPA\LEVODOPA
     Dosage: CONTINUOS DOSE: 6.2 ML/H
     Route: 050
     Dates: start: 201510

REACTIONS (15)
  - Infected skin ulcer [Recovering/Resolving]
  - Parkinsonism [Unknown]
  - Hypophagia [Unknown]
  - Hypertension [Unknown]
  - Wound complication [Recovering/Resolving]
  - Decubitus ulcer [Not Recovered/Not Resolved]
  - Dysphagia [Unknown]
  - Nervous system disorder [Unknown]
  - Dysphagia [Unknown]
  - Device occlusion [Unknown]
  - Syncope [Unknown]
  - Malnutrition [Unknown]
  - Weight decreased [Unknown]
  - Infected skin ulcer [Recovered/Resolved]
  - Hypotension [Unknown]

NARRATIVE: CASE EVENT DATE: 2015
